FAERS Safety Report 25686555 (Version 2)
Quarter: 2025Q3

REPORT INFORMATION
  Report Type: Spontaneous
  Country: US (occurrence: US)
  Receive Date: 20250816
  Receipt Date: 20250819
  Transmission Date: 20251020
  Serious: No
  Sender: SANOFI AVENTIS
  Company Number: US-SA-2025SA235768

PATIENT
  Age: 8 Year
  Sex: Female
  Weight: 27.755 kg

DRUGS (5)
  1. DUPIXENT [Suspect]
     Active Substance: DUPILUMAB
     Indication: Dermatitis atopic
     Dosage: 300 MG, Q4W
     Route: 058
  2. HYDROXYZINE HYDROCHLORIDE [Concomitant]
     Active Substance: HYDROXYZINE HYDROCHLORIDE
  3. CLOBETASOL [Concomitant]
     Active Substance: CLOBETASOL
  4. BETAMETHASONE DIPROPIONATE AUGMENTED [Concomitant]
     Active Substance: BETAMETHASONE DIPROPIONATE
  5. ELIDEL [Concomitant]
     Active Substance: PIMECROLIMUS

REACTIONS (5)
  - Rebound atopic dermatitis [Unknown]
  - Erythema [Unknown]
  - Ocular hyperaemia [Unknown]
  - Drug dose omission by device [Unknown]
  - Needle issue [Unknown]
